FAERS Safety Report 6310262-1 (Version None)
Quarter: 2009Q3

REPORT INFORMATION
  Report Type: 
  Country: None (occurrence: None)
  Receive Date: 20090811
  Receipt Date: 20090728
  Transmission Date: 20100115
  Serious: Yes (Hospitalization)
  Sender: FDA-Public Use
  Company Number: KV200800173

PATIENT
  Age: 51 Year
  Sex: Female

DRUGS (1)
  1. MORPHINE SULFATE [Suspect]
     Indication: PAIN MANAGEMENT
     Dosage: 30 MG, ORAL
     Route: 048

REACTIONS (7)
  - AMNESIA [None]
  - ASTHENIA [None]
  - COMA [None]
  - HEPATIC FAILURE [None]
  - LOSS OF CONSCIOUSNESS [None]
  - PRODUCT QUALITY ISSUE [None]
  - PYREXIA [None]
